FAERS Safety Report 22199496 (Version 1)
Quarter: 2023Q2

REPORT INFORMATION
  Report Type: Spontaneous
  Country: CA (occurrence: CA)
  Receive Date: 20230412
  Receipt Date: 20230412
  Transmission Date: 20230721
  Serious: Yes (Other)
  Sender: FDA-Public Use
  Company Number: CA-BAXTER-2023BAX017830

PATIENT
  Age: 35 Year
  Sex: Female

DRUGS (2)
  1. BUPIVACAINE [Suspect]
     Active Substance: BUPIVACAINE
     Indication: Caesarean section
     Dosage: BUPIVACAINE HYDROCHLORIDE IN DEXTROSE INJECTION USP SINGLE DOSE (DOSAGE FORM: SOLUTION INTRASPINAL)
     Route: 037
  2. MORPHINE [Concomitant]
     Active Substance: MORPHINE
     Dosage: AT AN UNSPECIFIED DOSE AND FREQUENCY (DOSAGE FORM: NOT SPECIFIED)
     Route: 065

REACTIONS (1)
  - Drug ineffective [Unknown]
